FAERS Safety Report 5949795-6 (Version None)
Quarter: 2008Q4

REPORT INFORMATION
  Report Type: 
  Country: None (occurrence: None)
  Receive Date: 20081022
  Receipt Date: 20080527
  Transmission Date: 20090506
  Serious: Yes (Other)
  Sender: FDA-Public Use
  Company Number: SPV1-2008-01194

PATIENT
  Age: 16 Year
  Sex: Female
  Weight: 51.2 kg

DRUGS (4)
  1. VYVANSE [Suspect]
     Indication: ATTENTION DEFICIT/HYPERACTIVITY DISORDER
     Dosage: 50 MG, 1X/DAY:QD, ORAL
     Route: 048
     Dates: start: 20070101
  2. ADDERALL 10 [Concomitant]
  3. YASMIN [Concomitant]
  4. DOXYCYCLINE [Concomitant]

REACTIONS (7)
  - AGGRESSION [None]
  - DECREASED APPETITE [None]
  - EDUCATIONAL PROBLEM [None]
  - IMPULSIVE BEHAVIOUR [None]
  - SPEECH DISORDER [None]
  - SUICIDAL IDEATION [None]
  - URTICARIA [None]
